FAERS Safety Report 4507965-8 (Version None)
Quarter: 2004Q4

REPORT INFORMATION
  Report Type: 
  Country: None (occurrence: None)
  Receive Date: 20041122
  Receipt Date: 20041122
  Transmission Date: 20050328
  Serious: No
  Sender: FDA-Public Use
  Company Number: None

PATIENT
  Age: 79 Year
  Sex: Male
  Weight: 99 kg

DRUGS (1)
  1. POTASSIUM 10 MEQ (ABBOTT) [Suspect]
     Indication: DIURETIC THERAPY
     Dosage: 10 MEQ PO QD
     Route: 048
     Dates: start: 20010808, end: 20041006

REACTIONS (1)
  - BLOOD POTASSIUM INCREASED [None]
